FAERS Safety Report 25817003 (Version 1)
Quarter: 2025Q3

REPORT INFORMATION
  Report Type: Spontaneous
  Country: US (occurrence: None)
  Receive Date: 20250917
  Receipt Date: 20250917
  Transmission Date: 20251021
  Serious: No
  Sender: FDA-CTU
  Company Number: None

PATIENT
  Age: 71 Year
  Sex: Male

DRUGS (1)
  1. GOCOVRI [Suspect]
     Active Substance: AMANTADINE
     Indication: Parkinson^s disease
     Dosage: OTHER FREQUENCY : EVERY PM;?
     Route: 048
     Dates: start: 20250819, end: 20250904

REACTIONS (2)
  - Asthenia [None]
  - Somnolence [None]

NARRATIVE: CASE EVENT DATE: 20250904
